FAERS Safety Report 9542440 (Version 1)
Quarter: 2013Q2

REPORT INFORMATION
  Report Type: Spontaneous
  Country: US (occurrence: None)
  Receive Date: 20130524
  Receipt Date: 20130524
  Transmission Date: 20140414
  Serious: No
  Sender: FDA-Public Use
  Company Number: PHEH2012US025520

PATIENT
  Age: 49 Year
  Sex: Female

DRUGS (3)
  1. GILENYA [Suspect]
     Indication: MULTIPLE SCLEROSIS
     Route: 048
     Dates: start: 20121205
  2. CLARITIN-D(LORATADINE, PSEUDOEPHEDRINE SULFATE) [Concomitant]
  3. LISINOPRIL(LISINOPRIL) [Concomitant]

REACTIONS (3)
  - Decreased interest [None]
  - Crying [None]
  - Nausea [None]
